FAERS Safety Report 24816878 (Version 1)
Quarter: 2025Q1

REPORT INFORMATION
  Report Type: Spontaneous
  Country: IN (occurrence: None)
  Receive Date: 20250107
  Receipt Date: 20250107
  Transmission Date: 20250409
  Serious: Yes (Death, Hospitalization)
  Sender: ENCUBE ETHICALS
  Company Number: IN-Encube-001546

PATIENT
  Age: 53 Year
  Sex: Male

DRUGS (2)
  1. DICLOFENAC SODIUM [Suspect]
     Active Substance: DICLOFENAC SODIUM
     Indication: Pain
     Route: 030
     Dates: start: 20230205, end: 20230205
  2. VITAMIN B12 [Suspect]
     Active Substance: CYANOCOBALAMIN
     Indication: Pain
     Dates: start: 20230205, end: 20230205

REACTIONS (4)
  - Gas gangrene [Fatal]
  - Sepsis [Fatal]
  - Off label use [Unknown]
  - Renal tubular necrosis [Fatal]

NARRATIVE: CASE EVENT DATE: 20230201
